FAERS Safety Report 24681867 (Version 1)
Quarter: 2024Q4

REPORT INFORMATION
  Report Type: Spontaneous
  Country: CN (occurrence: None)
  Receive Date: 20241130
  Receipt Date: 20241130
  Transmission Date: 20250115
  Serious: Yes (Other)
  Sender: ALEXION PHARMACEUTICALS
  Company Number: CN-ASTRAZENECA-202411CHN016910CN

PATIENT
  Age: 49 Year
  Weight: 64.7 kg

DRUGS (1)
  1. DAPAGLIFLOZIN [Suspect]
     Active Substance: DAPAGLIFLOZIN
     Indication: Blood glucose decreased
     Dosage: 10 MILLIGRAM, QD

REACTIONS (1)
  - Creatinine renal clearance increased [Recovering/Resolving]
